FAERS Safety Report 7534738-4 (Version None)
Quarter: 2011Q2

REPORT INFORMATION
  Report Type: 
  Country: None (occurrence: None)
  Receive Date: 20110609
  Receipt Date: 20110601
  Transmission Date: 20111010
  Serious: Yes (Other)
  Sender: FDA-Public Use
  Company Number: US-AMGEN-TCS422019

PATIENT
  Age: 37 Year
  Sex: Female

DRUGS (5)
  1. CLOMID [Concomitant]
     Dosage: UNK UNK, UNK
     Dates: start: 20100201
  2. DICLOFENAC SODIUM [Concomitant]
     Dosage: UNK UNK, UNK
     Dates: end: 20100701
  3. CHORIONIC GONADOTROPIN [Concomitant]
     Dosage: UNK UNK, UNK
     Dates: start: 20100201
  4. ENBREL [Suspect]
     Dosage: 25 MG, 2 TIMES/WK
     Route: 058
     Dates: start: 20090503
  5. ENBREL [Suspect]
     Indication: JUVENILE ARTHRITIS
     Dosage: 25 MG, 2 TIMES/WK
     Route: 058
     Dates: start: 20090503

REACTIONS (2)
  - CEPHALO-PELVIC DISPROPORTION [None]
  - OVARIAN DISORDER [None]
